FAERS Safety Report 19192762 (Version 1)
Quarter: 2021Q2

REPORT INFORMATION
  Report Type: Report from Study
  Country: MX (occurrence: MX)
  Receive Date: 20210428
  Receipt Date: 20210428
  Transmission Date: 20210717
  Serious: Yes (Other)
  Sender: FDA-Public Use
  Company Number: NVSC2021MX010744

PATIENT
  Age: 66 Year
  Sex: Female
  Weight: 89 kg

DRUGS (5)
  1. COSENTYX [Suspect]
     Active Substance: SECUKINUMAB
     Indication: ANKYLOSING SPONDYLITIS
     Dosage: 150 MG, QMO, 1 DF
     Route: 058
     Dates: start: 2020, end: 20210105
  2. COSENTYX [Suspect]
     Active Substance: SECUKINUMAB
     Dosage: 300 MG, QMO, 2 DF
     Route: 058
     Dates: start: 20210105
  3. COSENTYX [Suspect]
     Active Substance: SECUKINUMAB
     Dosage: 2 DF(150 MG), BID
     Route: 058
     Dates: start: 20210205
  4. EDARBI [Concomitant]
     Active Substance: AZILSARTAN KAMEDOXOMIL
     Indication: HYPERTENSION
     Dosage: 1 DF, QD
     Route: 048
  5. COSENTYX [Suspect]
     Active Substance: SECUKINUMAB
     Dosage: 1 DF(150 MG), QW
     Route: 058

REACTIONS (10)
  - Pyrexia [Recovered/Resolved]
  - Bone pain [Recovering/Resolving]
  - Swelling [Not Recovered/Not Resolved]
  - Drug ineffective [Unknown]
  - Blindness [Recovered/Resolved]
  - Irritability [Recovered/Resolved]
  - Malaise [Recovering/Resolving]
  - Time perception altered [Recovered/Resolved]
  - COVID-19 [Recovered/Resolved]
  - Fatigue [Recovered/Resolved]

NARRATIVE: CASE EVENT DATE: 202002
